FAERS Safety Report 14013324 (Version 1)
Quarter: 2017Q3

REPORT INFORMATION
  Report Type: Spontaneous
  Country: US (occurrence: US)
  Receive Date: 20170926
  Receipt Date: 20170926
  Transmission Date: 20171128
  Serious: No
  Sender: FDA-Public Use
  Company Number: US-BIOGEN-2017BI00461250

PATIENT
  Sex: Female

DRUGS (1)
  1. PLEGRIDY [Suspect]
     Active Substance: PEGINTERFERON BETA-1A
     Indication: MULTIPLE SCLEROSIS
     Route: 065
     Dates: start: 20170227

REACTIONS (5)
  - Pruritus [Unknown]
  - Urticaria [Unknown]
  - Influenza like illness [Unknown]
  - Injection site reaction [Unknown]
  - Hypersensitivity [Unknown]
